FAERS Safety Report 8443893-3 (Version None)
Quarter: 2012Q2

REPORT INFORMATION
  Report Type: 
  Country: None (occurrence: None)
  Receive Date: 20120618
  Receipt Date: 20120608
  Transmission Date: 20120825
  Serious: Yes (Hospitalization)
  Sender: FDA-Public Use
  Company Number: FR-BAYER-2012-057752

PATIENT
  Age: 65 Year
  Sex: Male

DRUGS (9)
  1. LEXOMIL [Concomitant]
     Dosage: UNK
  2. NEXIUM [Concomitant]
  3. DOMPERIDONE [Concomitant]
  4. POLYETHYLENE GLYCOL [Concomitant]
  5. THIOCOLCHICOSIDE [Concomitant]
  6. LEVOTHYROXINE SODIUM [Concomitant]
     Dosage: 125 ?G, UNK
  7. OXYNORM [Concomitant]
     Dosage: 5 MG, UNK
  8. NEXAVAR [Suspect]
     Indication: NEOPLASM
     Dosage: 2 DF, UNK
     Route: 048
     Dates: start: 20111005, end: 20111021
  9. NEURONTIN [Concomitant]

REACTIONS (1)
  - OPEN WOUND [None]
